FAERS Safety Report 25268528 (Version 1)
Quarter: 2025Q2

REPORT INFORMATION
  Report Type: Spontaneous
  Country: IN (occurrence: IN)
  Receive Date: 20250505
  Receipt Date: 20250505
  Transmission Date: 20250716
  Serious: Yes (Other)
  Sender: ACCORD
  Company Number: IN-MLMSERVICE-20250418-PI485566-00306-1

PATIENT
  Age: 25 Year
  Sex: Male

DRUGS (2)
  1. TACROLIMUS [Suspect]
     Active Substance: TACROLIMUS
     Indication: Focal segmental glomerulosclerosis
     Dates: start: 2018, end: 2023
  2. TACROLIMUS [Suspect]
     Active Substance: TACROLIMUS
     Indication: Focal segmental glomerulosclerosis
     Dosage: DOSE WAS REDUCED
     Dates: start: 2023

REACTIONS (8)
  - Hepatitis C [Unknown]
  - Pulmonary tuberculosis [Unknown]
  - Pleural effusion [Unknown]
  - New onset diabetes after transplantation [Unknown]
  - Meningitis cryptococcal [Recovering/Resolving]
  - Pulmonary nocardiosis [Unknown]
  - Bronchopulmonary aspergillosis [Unknown]
  - Immunosuppressant drug level increased [Unknown]

NARRATIVE: CASE EVENT DATE: 20220101
